FAERS Safety Report 8105296-0 (Version None)
Quarter: 2012Q1

REPORT INFORMATION
  Report Type: 
  Country: None (occurrence: None)
  Receive Date: 20120201
  Receipt Date: 20120127
  Transmission Date: 20120608
  Serious: Yes (Other)
  Sender: FDA-Public Use
  Company Number: US-PFIZER INC-2012023532

PATIENT
  Sex: Female
  Weight: 73.469 kg

DRUGS (2)
  1. TIMOLOL [Concomitant]
     Dosage: UNK
  2. XALATAN [Suspect]
     Indication: GLAUCOMA
     Dosage: 1 GTT IN EACH EYE, 1X/DAY
     Dates: start: 20090601

REACTIONS (3)
  - GLAUCOMA [None]
  - EYE DISORDER [None]
  - CATARACT [None]
